FAERS Safety Report 24126115 (Version 1)
Quarter: 2024Q3

REPORT INFORMATION
  Report Type: Spontaneous
  Country: US (occurrence: None)
  Receive Date: 20240721
  Receipt Date: 20240721
  Transmission Date: 20241017
  Serious: Yes (Hospitalization)
  Sender: Public
  Company Number: None

PATIENT
  Age: 79 Year
  Sex: Male
  Weight: 90.9 kg

DRUGS (16)
  1. MOUNJARO [Suspect]
     Active Substance: TIRZEPATIDE
     Indication: Glycosylated haemoglobin increased
     Dosage: OTHER QUANTITY : 4 CAPSULE(S);?OTHER FREQUENCY : ONCE WEEKLY;?
     Route: 058
     Dates: start: 20240710
  2. MOUNJARO [Suspect]
     Active Substance: TIRZEPATIDE
     Indication: Obesity
  3. NIFEDIPINE [Concomitant]
     Active Substance: NIFEDIPINE
  4. GLIPIZIDE [Concomitant]
     Active Substance: GLIPIZIDE
  5. buproprion [Concomitant]
  6. GABAPENTIN [Concomitant]
  7. METFORMIN [Concomitant]
  8. XARELTO [Concomitant]
     Active Substance: RIVAROXABAN
  9. SIMVASTATIN [Concomitant]
  10. TAMSULOSIN [Concomitant]
  11. risperdone [Concomitant]
  12. PROTONIX [Concomitant]
     Active Substance: PANTOPRAZOLE SODIUM
  13. MAGNESIUM [Concomitant]
  14. SENNA [Concomitant]
     Active Substance: SENNA LEAF\SENNOSIDES\SENNOSIDES A AND B
  15. VITAMIN B [Concomitant]
     Active Substance: VITAMIN B
  16. VITAMIN D [Concomitant]
     Active Substance: VITAMIN D NOS

REACTIONS (5)
  - Small intestinal obstruction [None]
  - Ileus [None]
  - Hip surgery [None]
  - Cerebrovascular accident [None]
  - Visual impairment [None]

NARRATIVE: CASE EVENT DATE: 20240710
